FAERS Safety Report 24381955 (Version 2)
Quarter: 2024Q4

REPORT INFORMATION
  Report Type: Spontaneous
  Country: AU (occurrence: AU)
  Receive Date: 20241001
  Receipt Date: 20241107
  Transmission Date: 20250114
  Serious: Yes (Hospitalization, Other)
  Sender: CELLTRION
  Company Number: AU-PFIZER INC-PV202400123738

PATIENT

DRUGS (10)
  1. INFLIXIMAB [Suspect]
     Active Substance: INFLIXIMAB
     Indication: Colitis ulcerative
     Dosage: 1ST DOSE
     Route: 042
     Dates: start: 20240502
  2. INFLIXIMAB [Suspect]
     Active Substance: INFLIXIMAB
     Dosage: 2ND DOSE
     Route: 042
     Dates: start: 20240516
  3. INFLIXIMAB [Suspect]
     Active Substance: INFLIXIMAB
     Dosage: 3RD DOSE
     Route: 042
     Dates: start: 20240613
  4. INFLIXIMAB [Suspect]
     Active Substance: INFLIXIMAB
     Dosage: 700 MG, EVERY 6 WEEKS
     Dates: start: 20240808, end: 20240913
  5. INFLIXIMAB [Suspect]
     Active Substance: INFLIXIMAB
     Dosage: 800 MG, EVERY 4 WEEKS, AT THE 4 WEEKS MARK FROM LAST INFUSION (700MG)
     Route: 042
     Dates: start: 20240913
  6. METHOTREXATE SODIUM [Suspect]
     Active Substance: METHOTREXATE SODIUM
     Indication: Colitis ulcerative
     Dosage: 25 MG, WEEKLY
     Route: 048
     Dates: start: 20240502
  7. FOLIC ACID [Concomitant]
     Active Substance: FOLIC ACID
     Dosage: 5 MG, 6 DAYS/WEEK
  8. MESALAMINE [Concomitant]
     Active Substance: MESALAMINE
     Indication: Colitis ulcerative
     Dosage: 4 G, DAILY
  9. MESALAMINE [Concomitant]
     Active Substance: MESALAMINE
     Dosage: 4.8 G, DAILY
  10. BUDESONIDE [Concomitant]
     Active Substance: BUDESONIDE
     Dosage: 2 G, DAILY
     Route: 054

REACTIONS (3)
  - Condition aggravated [Recovered/Resolved]
  - Anaemia [Recovering/Resolving]
  - Drug level decreased [Unknown]

NARRATIVE: CASE EVENT DATE: 20240808
